FAERS Safety Report 5289453-7 (Version None)
Quarter: 2007Q2

REPORT INFORMATION
  Report Type: 
  Country: None (occurrence: None)
  Receive Date: 20070406
  Receipt Date: 20070322
  Transmission Date: 20071010
  Serious: Yes (Hospitalization, Other)
  Sender: FDA-Public Use
  Company Number: DE-JNJFOC-20070106013

PATIENT
  Age: 61 Year
  Sex: Female

DRUGS (3)
  1. REMICADE [Suspect]
     Indication: PSORIASIS
     Route: 042
  2. AZATHIOPRINE [Suspect]
     Indication: PSORIASIS
  3. DECORTIN H [Concomitant]
     Indication: PSORIASIS

REACTIONS (1)
  - ALVEOLITIS [None]
